FAERS Safety Report 9644134 (Version 3)
Quarter: 2013Q4

REPORT INFORMATION
  Report Type: Report from Study
  Country: ES (occurrence: ES)
  Receive Date: 20131024
  Receipt Date: 20131122
  Transmission Date: 20140711
  Serious: Yes (Hospitalization)
  Sender: FDA-Public Use
  Company Number: ES-PFIZER INC-2013301381

PATIENT
  Age: 79 Year
  Sex: Male

DRUGS (5)
  1. ALDACTONE [Suspect]
     Indication: ASCITES
     Dosage: 100 MG, 1X/DAY
     Route: 048
     Dates: start: 201207, end: 20120807
  2. HYDROCHLOROTHIAZIDE [Interacting]
     Indication: HYPERTENSION
     Dosage: 1 DF, 1X/DAY
     Route: 048
     Dates: start: 201203, end: 20120807
  3. VALSARTAN [Interacting]
     Indication: HYPERTENSION
     Dosage: 1 DF, 1X/DAY
     Route: 048
     Dates: start: 201203, end: 20120807
  4. SANDIMMUN NEORAL [Interacting]
     Indication: RENAL TRANSPLANT
     Dosage: 100 MG, MONTHLY
     Route: 048
     Dates: end: 20120807
  5. SEGURIL [Interacting]
     Indication: ASCITES
     Dosage: 40 MG, 3X/DAY
     Route: 048
     Dates: start: 201207, end: 20120807

REACTIONS (3)
  - Drug interaction [Recovered/Resolved]
  - Hyperkalaemia [Recovered/Resolved]
  - Renal failure acute [Recovered/Resolved]
